FAERS Safety Report 25390009 (Version 1)
Quarter: 2025Q2

REPORT INFORMATION
  Report Type: Spontaneous
  Country: US (occurrence: None)
  Receive Date: 20250602
  Receipt Date: 20250602
  Transmission Date: 20250716
  Serious: Yes (Hospitalization)
  Sender: FDA-CTU
  Company Number: None

PATIENT
  Age: 79 Year
  Sex: Male
  Weight: 69 kg

DRUGS (1)
  1. SULFAMETHOXAZOLE\TRIMETHOPRIM [Suspect]
     Active Substance: SULFAMETHOXAZOLE\TRIMETHOPRIM
     Indication: Urinary tract infection
     Route: 048
     Dates: start: 20250420, end: 20250423

REACTIONS (5)
  - Erythema multiforme [None]
  - Stevens-Johnson syndrome [None]
  - Therapy cessation [None]
  - Drug eruption [None]
  - Drug hypersensitivity [None]

NARRATIVE: CASE EVENT DATE: 20250423
